FAERS Safety Report 15702687 (Version 3)
Quarter: 2019Q1

REPORT INFORMATION
  Report Type: Spontaneous
  Country: CA (occurrence: CA)
  Receive Date: 20181210
  Receipt Date: 20190307
  Transmission Date: 20190417
  Serious: Yes (Other)
  Sender: FDA-Public Use
  Company Number: CA-ROCHE-2223318

PATIENT
  Age: 16 Year
  Sex: Male

DRUGS (4)
  1. XOLAIR [Suspect]
     Active Substance: OMALIZUMAB
     Indication: CHRONIC SPONTANEOUS URTICARIA
     Route: 058
     Dates: start: 20181108
  2. CONCERTA [Concomitant]
     Active Substance: METHYLPHENIDATE HYDROCHLORIDE
     Indication: ATTENTION DEFICIT/HYPERACTIVITY DISORDER
     Route: 065
  3. RUPALL [Concomitant]
     Active Substance: RUPATADINE FUMARATE
     Indication: CHRONIC SPONTANEOUS URTICARIA
     Route: 048
     Dates: start: 201808
  4. SINGULAIR [Concomitant]
     Active Substance: MONTELUKAST SODIUM
     Indication: CHRONIC SPONTANEOUS URTICARIA
     Route: 065
     Dates: start: 201808

REACTIONS (6)
  - Anaphylactic reaction [Unknown]
  - Arthralgia [Unknown]
  - Malaise [Unknown]
  - Dizziness [Unknown]
  - Nausea [Unknown]
  - Dyspnoea [Unknown]

NARRATIVE: CASE EVENT DATE: 20181113
